FAERS Safety Report 7544057-8 (Version None)
Quarter: 2011Q2

REPORT INFORMATION
  Report Type: 
  Country: None (occurrence: None)
  Receive Date: 20110613
  Receipt Date: 20051020
  Transmission Date: 20111010
  Serious: Yes (Death, Hospitalization, Other)
  Sender: FDA-Public Use
  Company Number: PHFR2004GB00915

PATIENT
  Sex: Female

DRUGS (8)
  1. CHLORPROMAZINE [Concomitant]
     Indication: AGITATION
     Dosage: 10 MG, BID
     Route: 048
  2. SERETIDE [Concomitant]
  3. AMLODIPINE [Concomitant]
     Indication: HYPERTENSION
     Dosage: 5MG/DAY
     Route: 065
  4. DOCUSATE [Concomitant]
     Indication: CONSTIPATION
     Route: 048
  5. COMBIVENT [Concomitant]
  6. CLOZAPINE [Suspect]
     Indication: SCHIZOPHRENIA
     Dosage: UNK
     Route: 048
     Dates: start: 20020805
  7. SENNA-MINT WAF [Concomitant]
     Indication: CONSTIPATION
     Route: 065
  8. LANSOPRAZOLE [Concomitant]
     Indication: HIATUS HERNIA
     Dosage: 15 MG, QD
     Route: 065

REACTIONS (5)
  - RESPIRATORY FAILURE [None]
  - CHRONIC OBSTRUCTIVE PULMONARY DISEASE [None]
  - MALAISE [None]
  - URINARY TRACT INFECTION [None]
  - ILL-DEFINED DISORDER [None]
